FAERS Safety Report 9443410 (Version 1)
Quarter: 2013Q3

REPORT INFORMATION
  Report Type: Spontaneous
  Country: FR (occurrence: FR)
  Receive Date: 20130806
  Receipt Date: 20130806
  Transmission Date: 20140515
  Serious: Yes (Hospitalization)
  Sender: FDA-Public Use
  Company Number: FR-GLAXOSMITHKLINE-B0912147A

PATIENT
  Age: 53 Year
  Sex: Female

DRUGS (10)
  1. LAMICTAL [Suspect]
     Indication: PRODUCT USED FOR UNKNOWN INDICATION
     Route: 048
     Dates: start: 20130611, end: 20130630
  2. CLAMOXYL [Suspect]
     Indication: OROPHARYNGEAL PAIN
     Route: 065
     Dates: start: 20130629
  3. QUETIAPINE [Suspect]
     Indication: PRODUCT USED FOR UNKNOWN INDICATION
     Route: 065
     Dates: start: 20130628, end: 20130630
  4. URBANYL [Suspect]
     Indication: PRODUCT USED FOR UNKNOWN INDICATION
     Route: 065
     Dates: start: 20130628, end: 20130630
  5. LEVOTHYROX [Concomitant]
     Route: 065
  6. TEMESTA [Concomitant]
     Route: 065
  7. VALDOXAN [Concomitant]
     Route: 065
     Dates: start: 20130618
  8. ATARAX [Concomitant]
     Route: 065
     Dates: start: 20030627
  9. NUROFEN [Concomitant]
     Route: 065
     Dates: start: 20130629
  10. LEXOMIL [Concomitant]
     Route: 065
     Dates: start: 20130611

REACTIONS (15)
  - Stevens-Johnson syndrome [Recovered/Resolved]
  - Malaise [Recovered/Resolved]
  - Hyperthermia [Recovered/Resolved]
  - Oropharyngeal pain [Recovered/Resolved]
  - Rash [Recovered/Resolved]
  - Conjunctivitis [Recovered/Resolved]
  - Mucous membrane disorder [Recovered/Resolved]
  - Aphthous stomatitis [Recovered/Resolved]
  - Eyelid oedema [Recovered/Resolved]
  - Blister [Recovered/Resolved]
  - C-reactive protein increased [Recovered/Resolved]
  - Rash maculo-papular [Recovered/Resolved]
  - White blood cell count increased [Recovered/Resolved]
  - Toxic skin eruption [Recovered/Resolved]
  - Incorrect drug administration rate [Unknown]
